FAERS Safety Report 20106044 (Version 3)
Quarter: 2021Q4

REPORT INFORMATION
  Report Type: Spontaneous
  Country: CN (occurrence: CN)
  Receive Date: 20211124
  Receipt Date: 20211208
  Transmission Date: 20220303
  Serious: Yes (Hospitalization)
  Sender: FDA-Public Use
  Company Number: CN-BIOGEN-2021BI01070154

PATIENT
  Sex: Male
  Weight: 9 kg

DRUGS (6)
  1. SPINRAZA [Suspect]
     Active Substance: NUSINERSEN
     Indication: Spinal muscular atrophy
     Dosage: 12MG/5ML
     Route: 037
     Dates: start: 20200904
  2. SPINRAZA [Suspect]
     Active Substance: NUSINERSEN
     Dosage: 12MG/5ML
     Route: 037
     Dates: start: 20200918
  3. SPINRAZA [Suspect]
     Active Substance: NUSINERSEN
     Dosage: 12MG/5ML
     Route: 037
     Dates: start: 20201001
  4. SPINRAZA [Suspect]
     Active Substance: NUSINERSEN
     Dosage: 12MG/5ML
     Route: 037
     Dates: start: 20201106
  5. SPINRAZA [Suspect]
     Active Substance: NUSINERSEN
     Dosage: 12MG/5ML
     Route: 037
     Dates: start: 20210722, end: 20211119
  6. SPINRAZA [Suspect]
     Active Substance: NUSINERSEN
     Dosage: 12MG/5ML
     Route: 037
     Dates: start: 20210325

REACTIONS (1)
  - Nasopharyngitis [Recovered/Resolved]
